FAERS Safety Report 13922221 (Version 3)
Quarter: 2017Q3

REPORT INFORMATION
  Report Type: Report from Study
  Country: US (occurrence: US)
  Receive Date: 20170830
  Receipt Date: 20170920
  Transmission Date: 20171127
  Serious: Yes (Hospitalization)
  Sender: FDA-Public Use
  Company Number: US-GILEAD-2017-0290979

PATIENT
  Age: 80 Year
  Sex: Female
  Weight: 92 kg

DRUGS (3)
  1. SILDENAFIL CITRATE. [Suspect]
     Active Substance: SILDENAFIL CITRATE
     Indication: PRODUCT USED FOR UNKNOWN INDICATION
     Dosage: UNK
     Route: 065
  2. LASIX [Concomitant]
     Active Substance: FUROSEMIDE
  3. AMBRISENTAN [Suspect]
     Active Substance: AMBRISENTAN
     Indication: PRODUCT USED FOR UNKNOWN INDICATION
     Dosage: 5 MG, QD
     Route: 065
     Dates: start: 20170809

REACTIONS (8)
  - Dyspnoea [Unknown]
  - Cardiac disorder [Unknown]
  - Swelling face [Unknown]
  - Eye swelling [Unknown]
  - Oxygen saturation decreased [Unknown]
  - Total lung capacity decreased [Unknown]
  - Hypoxia [Unknown]
  - Peripheral swelling [Unknown]
